FAERS Safety Report 7373118-1 (Version None)
Quarter: 2011Q1

REPORT INFORMATION
  Report Type: 
  Country: None (occurrence: None)
  Receive Date: 20110316
  Receipt Date: 20110302
  Transmission Date: 20110831
  Serious: Yes (Hospitalization)
  Sender: FDA-Public Use
  Company Number: 2011-00285

PATIENT
  Age: 83 Year
  Sex: Female

DRUGS (3)
  1. AMOXICILLIN, POTASSIUM CLAVULANATE (CO-AMOXICLAV) [Concomitant]
  2. SIMVASTATIN [Suspect]
     Indication: HYPERLIPIDAEMIA
  3. CLARITHROMYCIN [Suspect]
     Indication: PNEUMONIA

REACTIONS (5)
  - MYOPATHY [None]
  - RHABDOMYOLYSIS [None]
  - DEHYDRATION [None]
  - DRUG INTERACTION [None]
  - HYPERCALCAEMIA [None]
